FAERS Safety Report 22226876 (Version 2)
Quarter: 2023Q2

REPORT INFORMATION
  Report Type: Spontaneous
  Country: CN (occurrence: CN)
  Receive Date: 20230419
  Receipt Date: 20230522
  Transmission Date: 20230721
  Serious: Yes (Other)
  Sender: FDA-Public Use
  Company Number: CN-BAXTER-2023BAX018426

PATIENT
  Age: 62 Year
  Sex: Female

DRUGS (10)
  1. MANNITOL [Suspect]
     Active Substance: MANNITOL
     Indication: Gastric cancer
     Dosage: ON DAY 1 IN A 21 DAY CYCLE
     Route: 042
  2. MANNITOL [Suspect]
     Active Substance: MANNITOL
     Dosage: 2ND CYCLE
     Route: 065
  3. MANNITOL [Suspect]
     Active Substance: MANNITOL
     Dosage: 3RD CYCLE
     Route: 065
  4. OXALIPLATIN [Suspect]
     Active Substance: OXALIPLATIN
     Indication: Gastric cancer
     Dosage: INFUSION ON DAY 1 IN A 21-DAY CYCLE
     Route: 042
  5. OXALIPLATIN [Suspect]
     Active Substance: OXALIPLATIN
     Dosage: 2ND CYCLE
     Route: 065
  6. OXALIPLATIN [Suspect]
     Active Substance: OXALIPLATIN
     Dosage: 3RD CYCLE
     Route: 065
  7. TEGAFUR [Suspect]
     Active Substance: TEGAFUR
     Indication: Gastric cancer
     Dosage: ON DAYS 1 TO 14 IN A 21-DAY CYCLE
     Route: 048
  8. GIMERACIL [Suspect]
     Active Substance: GIMERACIL
     Indication: Gastric cancer
     Dosage: ON DAYS 1 TO 14 IN A 21-DAY CYCLE
     Route: 048
  9. OTERACIL POTASSIUM [Suspect]
     Active Substance: OTERACIL POTASSIUM
     Indication: Gastric cancer
     Dosage: ON DAYS 1 TO 14 IN A 21-DAY CYCLE
     Route: 048
  10. DEXAMETHASONE [Concomitant]
     Active Substance: DEXAMETHASONE
     Indication: Premedication
     Dosage: PRETREATMENT 3 H BEFORE
     Route: 065

REACTIONS (10)
  - Dermatitis exfoliative [Recovered/Resolved]
  - Peripheral swelling [Recovered/Resolved]
  - Flushing [Recovered/Resolved]
  - Erythema [Recovered/Resolved]
  - Dyspnoea [Recovered/Resolved]
  - Scratch [Recovered/Resolved]
  - Skin exfoliation [Recovered/Resolved]
  - Blister [Recovered/Resolved]
  - Nausea [Unknown]
  - Fatigue [Unknown]
